FAERS Safety Report 4812898-3 (Version None)
Quarter: 2005Q4

REPORT INFORMATION
  Report Type: 
  Country: None (occurrence: None)
  Receive Date: 20051028
  Receipt Date: 20041206
  Transmission Date: 20060501
  Serious: No
  Sender: FDA-Public Use
  Company Number: US-GLAXOSMITHKLINE-A0536514A

PATIENT
  Age: 74 Year
  Sex: Male

DRUGS (7)
  1. ADVAIR DISKUS 100/50 [Suspect]
     Indication: CHRONIC OBSTRUCTIVE PULMONARY DISEASE
     Dosage: 1PUFF PER DAY
     Route: 055
  2. SINGULAIR [Concomitant]
  3. ZYRTEC [Concomitant]
  4. NICORETTE [Concomitant]
  5. SELENIUM SULFIDE [Concomitant]
  6. ONE A DAY [Concomitant]
  7. ASCORBIC ACID [Concomitant]

REACTIONS (4)
  - CANDIDIASIS [None]
  - DYSPHONIA [None]
  - RASH [None]
  - TONGUE DISORDER [None]
